FAERS Safety Report 14175975 (Version 1)
Quarter: 2017Q4

REPORT INFORMATION
  Report Type: Spontaneous
  Country: US (occurrence: US)
  Receive Date: 20171109
  Receipt Date: 20171109
  Transmission Date: 20180321
  Serious: No
  Sender: FDA-Public Use
  Company Number: US-LEXICON PHARMACEUTICALS, INC-17-1606-01000

PATIENT
  Sex: Male

DRUGS (19)
  1. MELATONIN [Concomitant]
     Active Substance: MELATONIN
  2. TELOTRISTAT ETHYL [Suspect]
     Active Substance: TELOTRISTAT ETHYL
  3. LOPERAMIDE [Concomitant]
     Active Substance: LOPERAMIDE
  4. FIBER [Concomitant]
     Active Substance: PSYLLIUM HUSK
  5. TYLENOL [Concomitant]
     Active Substance: ACETAMINOPHEN
  6. MULTIVITAMIN [Concomitant]
     Active Substance: VITAMINS
  7. MEGACE ORAL SUS [Concomitant]
  8. K-PHOS [Concomitant]
     Active Substance: POTASSIUM PHOSPHATE, MONOBASIC
  9. DIPHENOXYLATE-ATROPINE [Concomitant]
  10. SANDOSTATIN [Concomitant]
     Active Substance: OCTREOTIDE ACETATE
  11. QUESTRAN [Concomitant]
     Active Substance: CHOLESTYRAMINE
  12. SIMETHICONE (DIMETHICONE) [Concomitant]
     Active Substance: DIMETHICONE
  13. ZOFRAN [Concomitant]
     Active Substance: ONDANSETRON HYDROCHLORIDE
  14. ROXICODONE [Concomitant]
     Active Substance: OXYCODONE HYDROCHLORIDE
  15. OMEGA3 [Concomitant]
  16. TELOTRISTAT ETHYL [Suspect]
     Active Substance: TELOTRISTAT ETHYL
     Indication: CARCINOID TUMOUR
     Route: 048
     Dates: start: 20170422
  17. METAMUCIL [Concomitant]
     Active Substance: PLANTAGO SEED
  18. BELLADONNA-OPIUM [Concomitant]
  19. CREON [Concomitant]
     Active Substance: PANCRELIPASE AMYLASE\PANCRELIPASE LIPASE\PANCRELIPASE PROTEASE

REACTIONS (1)
  - Diarrhoea [Not Recovered/Not Resolved]

NARRATIVE: CASE EVENT DATE: 2017
